FAERS Safety Report 24290365 (Version 4)
Quarter: 2024Q4

REPORT INFORMATION
  Report Type: Spontaneous
  Country: US (occurrence: US)
  Receive Date: 20240906
  Receipt Date: 20241022
  Transmission Date: 20250115
  Serious: Yes (Death, Hospitalization, Other)
  Sender: IPSEN BIOPHARMACEUTICALS, INC.
  Company Number: US-IPSEN Group, Research and Development-2024-17425

PATIENT
  Age: 1 Year
  Sex: Male
  Weight: 11.79 kg

DRUGS (2)
  1. TAZVERIK [Suspect]
     Active Substance: TAZEMETOSTAT HYDROBROMIDE
     Indication: Neoplasm malignant
     Dosage: 200 MG TWICE DAILY
     Route: 048
  2. TAZVERIK [Suspect]
     Active Substance: TAZEMETOSTAT HYDROBROMIDE
     Indication: Off label use

REACTIONS (4)
  - Death [Fatal]
  - Laboratory test abnormal [Recovering/Resolving]
  - Off label use [Unknown]
  - Off label use [Unknown]
